FAERS Safety Report 15866581 (Version 2)
Quarter: 2019Q1

REPORT INFORMATION
  Report Type: Spontaneous
  Country: US (occurrence: US)
  Receive Date: 20190125
  Receipt Date: 20190204
  Transmission Date: 20190417
  Serious: No
  Sender: FDA-Public Use
  Company Number: US-IPSEN BIOPHARMACEUTICALS, INC.-2019-01102

PATIENT
  Age: 63 Year
  Sex: Female

DRUGS (11)
  1. PANTOPRAZOLE [Concomitant]
     Active Substance: PANTOPRAZOLE
  2. GABAPENTIN. [Concomitant]
     Active Substance: GABAPENTIN
  3. TAMOXIFEN [Concomitant]
     Active Substance: TAMOXIFEN
  4. ATENOLOL. [Concomitant]
     Active Substance: ATENOLOL
  5. POTASSIUM CHLORIDE. [Concomitant]
     Active Substance: POTASSIUM CHLORIDE
  6. DYSPORT [Suspect]
     Active Substance: ABOBOTULINUMTOXINA
     Indication: SKIN COSMETIC PROCEDURE
     Dosage: 5 UNITS INJECTED IN 5 LOCATIONS. (ON EACH OF 2 PLATYSMAL BANDS FOR A TOTAL OF 10 INJECTION POINTS)?(
     Route: 030
     Dates: start: 20190104, end: 20190104
  7. ALLOPURINOL. [Concomitant]
     Active Substance: ALLOPURINOL
  8. DYSPORT [Suspect]
     Active Substance: ABOBOTULINUMTOXINA
     Indication: OFF LABEL USE
  9. VERAPAMIL [Concomitant]
     Active Substance: VERAPAMIL HYDROCHLORIDE
  10. HCTZ [Concomitant]
     Active Substance: HYDROCHLOROTHIAZIDE
  11. RESTYLANE [Suspect]
     Active Substance: HYALURONIC ACID
     Indication: SKIN COSMETIC PROCEDURE
     Dates: start: 20190104, end: 20190104

REACTIONS (2)
  - Off label use [Unknown]
  - Aphonia [Not Recovered/Not Resolved]

NARRATIVE: CASE EVENT DATE: 20190104
